FAERS Safety Report 9985615 (Version 3)
Quarter: 2014Q2

REPORT INFORMATION
  Report Type: Spontaneous
  Country: US (occurrence: US)
  Receive Date: 20140307
  Receipt Date: 20140418
  Transmission Date: 20141212
  Serious: Yes (Other)
  Sender: FDA-Public Use
  Company Number: US-AMGEN-USASP2014015058

PATIENT
  Age: 61 Year
  Sex: Male
  Weight: 102.4 kg

DRUGS (8)
  1. NPLATE [Suspect]
     Indication: IMMUNE THROMBOCYTOPENIC PURPURA
     Dosage: 750 MUG, QWK
     Route: 058
     Dates: start: 20081215
  2. LANSOPRAZOLE [Concomitant]
     Indication: GASTROOESOPHAGEAL REFLUX DISEASE
     Dosage: 30 MG, QD
     Dates: start: 201201
  3. AZOR                               /06230801/ [Concomitant]
     Indication: HYPERTENSION
     Dosage: 5 -40 MG, QD
     Route: 048
     Dates: start: 201201
  4. CARVEDILOL [Concomitant]
     Indication: CARDIAC FAILURE CONGESTIVE
     Dosage: 25 MG, BID
     Route: 048
     Dates: start: 2008
  5. SIMVASTATIN [Concomitant]
     Indication: BLOOD CHOLESTEROL INCREASED
     Dosage: 20 MG, QD
     Route: 048
     Dates: start: 2006
  6. FLECAINIDE [Concomitant]
     Indication: TACHYCARDIA
     Dosage: 100 MG, BID
     Route: 048
     Dates: start: 2006
  7. DILTIAZEM [Concomitant]
     Indication: HYPERTENSION
     Dosage: 180 UNK, UNK
     Route: 048
     Dates: start: 201201
  8. FENOFIBRATE [Concomitant]
     Indication: LIPIDS INCREASED
     Dosage: 145 MG, UNK
     Dates: start: 2006

REACTIONS (1)
  - Therapeutic response decreased [Unknown]
